FAERS Safety Report 21132792 (Version 1)
Quarter: 2022Q3

REPORT INFORMATION
  Report Type: Spontaneous
  Country: CA (occurrence: CA)
  Receive Date: 20220726
  Receipt Date: 20220726
  Transmission Date: 20221026
  Serious: Yes (Other)
  Sender: FDA-Public Use
  Company Number: CA-NOVARTISPH-NVSC2022CA166784

PATIENT
  Age: 84 Year
  Sex: Female
  Weight: 110 kg

DRUGS (1)
  1. IRBESARTAN [Suspect]
     Active Substance: IRBESARTAN
     Indication: Hypertension
     Dosage: 1 DOSAGE FORM, QD
     Route: 048

REACTIONS (1)
  - Alopecia [Not Recovered/Not Resolved]
